FAERS Safety Report 5099291-6 (Version None)
Quarter: 2006Q3

REPORT INFORMATION
  Report Type: 
  Country: None (occurrence: None)
  Receive Date: 20060731
  Receipt Date: 20050616
  Transmission Date: 20061208
  Serious: Yes (Hospitalization)
  Sender: FDA-Public Use
  Company Number: 02/04949-USE

PATIENT
  Age: 33 Year
  Sex: Female

DRUGS (9)
  1. MAGNEVIST [Suspect]
     Indication: NUCLEAR MAGNETIC RESONANCE IMAGING BRAIN
     Dosage: 20 ML 1 DOSE INTRAVENOUS
     Route: 042
     Dates: start: 20020614, end: 20020614
  2. DEPAKOTE [Concomitant]
  3. FLOVENT [Concomitant]
  4. ASCRIPTIN (MAGNESIUM HYDROXIDE, ALUMINIUM HYDROXIDE, ACETYLSALICYLIC A [Concomitant]
  5. TEGRETOL [Concomitant]
  6. PROVENTIL [Concomitant]
  7. TYLENOL [Concomitant]
  8. HYDROCODONE (HYDROCODONE) [Concomitant]
  9. PHENERGAN [Concomitant]

REACTIONS (3)
  - GRAND MAL CONVULSION [None]
  - LETHARGY [None]
  - VOMITING [None]
